FAERS Safety Report 20536819 (Version 1)
Quarter: 2022Q1

REPORT INFORMATION
  Report Type: Spontaneous
  Country: FR (occurrence: FR)
  Receive Date: 20220302
  Receipt Date: 20220302
  Transmission Date: 20220423
  Serious: Yes (Congenital Anomaly, Other)
  Sender: FDA-Public Use
  Company Number: None

PATIENT
  Age: 1 Day
  Sex: Female
  Weight: 2.5 kg

DRUGS (7)
  1. CLONAZEPAM [Suspect]
     Active Substance: CLONAZEPAM
     Dosage: 15 GTT (DRP), DAILY
     Route: 064
     Dates: start: 201911, end: 20200303
  2. KEPPRA [Suspect]
     Active Substance: LEVETIRACETAM
     Indication: Generalised tonic-clonic seizure
     Dosage: 1000 MG, DAILY
     Route: 064
     Dates: start: 201906, end: 20200303
  3. LAMICTAL [Suspect]
     Active Substance: LAMOTRIGINE
     Indication: Generalised tonic-clonic seizure
     Dosage: 200 MG, DAILY
     Route: 064
     Dates: start: 201906, end: 20200303
  4. VALPROATE SODIUM [Suspect]
     Active Substance: VALPROATE SODIUM
     Indication: Generalised tonic-clonic seizure
     Dosage: 300 MG, DAILY
     Route: 064
     Dates: start: 201906, end: 20200303
  5. CLOBAZAM [Suspect]
     Active Substance: CLOBAZAM
     Indication: Generalised tonic-clonic seizure
     Dosage: 15 MG, DAILY
     Route: 064
     Dates: start: 201906, end: 201911
  6. ZONEGRAN [Suspect]
     Active Substance: ZONISAMIDE
     Indication: Generalised tonic-clonic seizure
     Dosage: 300 MG, DAILY
     Route: 064
     Dates: start: 201906, end: 20200303
  7. FOLIC ACID [Concomitant]
     Active Substance: FOLIC ACID
     Dosage: UNK
     Route: 065

REACTIONS (2)
  - Microcephaly [Not Recovered/Not Resolved]
  - Foetal exposure during pregnancy [Recovered/Resolved]

NARRATIVE: CASE EVENT DATE: 20191101
